FAERS Safety Report 7988688 (Version 2)
Quarter: 2013Q1

REPORT INFORMATION
  Report Type: Spontaneous
  Country: GB (occurrence: GB)
  Receive Date: 20110613
  Receipt Date: 20130222
  Transmission Date: 20140127
  Serious: Yes (Other)
  Sender: FDA-Public Use
  Company Number: PHFR2005GB03373

PATIENT
  Age: 42 Year
  Sex: Male

DRUGS (2)
  1. CLOZARIL [Suspect]
     Indication: SCHIZOPHRENIA
     Dosage: UNK
     Route: 048
     Dates: start: 20050914, end: 20051012
  2. CLOZARIL [Suspect]
     Dosage: UNK
     Route: 048
     Dates: start: 20051102

REACTIONS (3)
  - Infection parasitic [Unknown]
  - Eosinophil count increased [Unknown]
  - White blood cell count increased [Unknown]
